FAERS Safety Report 5622118-8 (Version None)
Quarter: 2008Q1

REPORT INFORMATION
  Report Type: 
  Country: None (occurrence: None)
  Receive Date: 20080211
  Receipt Date: 20080128
  Transmission Date: 20080703
  Serious: Yes (Death, Other)
  Sender: FDA-Public Use
  Company Number: JP-ROCHE-534875

PATIENT
  Age: 11 Year
  Sex: Male
  Weight: 31 kg

DRUGS (6)
  1. CELLCEPT [Suspect]
     Dosage: OTHER INDICATION: POST BONE MARROW TRANSPLANTATION
     Route: 048
     Dates: start: 20071117, end: 20071122
  2. CARBENIN [Concomitant]
     Route: 048
     Dates: start: 20071104, end: 20071222
  3. CLARITHROMYCIN [Concomitant]
     Route: 048
     Dates: start: 20071107, end: 20071222
  4. GASTER [Concomitant]
     Route: 042
     Dates: start: 20071109, end: 20071222
  5. BAKTAR [Concomitant]
     Route: 048
     Dates: start: 20071119, end: 20071222
  6. MINOMYCIN [Concomitant]
     Route: 042
     Dates: start: 20071204, end: 20071222

REACTIONS (4)
  - CARDIAC FAILURE [None]
  - JAUNDICE [None]
  - RENAL FAILURE [None]
  - RESPIRATORY FAILURE [None]
